FAERS Safety Report 9215421 (Version 1)
Quarter: 2013Q2

REPORT INFORMATION
  Report Type: Report from Study
  Country: BR (occurrence: BR)
  Receive Date: 20130405
  Receipt Date: 20130405
  Transmission Date: 20140414
  Serious: Yes (Other)
  Sender: FDA-Public Use
  Company Number: BR-AMGEN-KDC406726

PATIENT
  Age: 88 Year
  Sex: Male

DRUGS (2)
  1. DENOSUMAB [Suspect]
     Indication: PROSTATE CANCER
     Dosage: UNK BLINDED, UNK
     Dates: start: 20070425, end: 20091006
  2. ZOLADEX [Concomitant]
     Dosage: 3.6 MG, QMO
     Route: 058
     Dates: start: 200601

REACTIONS (1)
  - Osteonecrosis of jaw [Not Recovered/Not Resolved]
